FAERS Safety Report 12073843 (Version 3)
Quarter: 2016Q2

REPORT INFORMATION
  Report Type: Spontaneous
  Country: IT (occurrence: IT)
  Receive Date: 20160212
  Receipt Date: 20160610
  Transmission Date: 20160815
  Serious: Yes (Other)
  Sender: FDA-Public Use
  Company Number: IT-TEVA-632909ACC

PATIENT
  Age: 45 Year
  Sex: Female

DRUGS (2)
  1. FLAGYL - 250 MG COMPRESSE [Concomitant]
     Indication: HELICOBACTER INFECTION
     Dosage: 4 DF
     Route: 048
     Dates: start: 20151202, end: 20151204
  2. CLARITHROMYCIN. [Suspect]
     Active Substance: CLARITHROMYCIN
     Indication: HELICOBACTER INFECTION
     Dosage: 2 DOSAGE FORMS DAILY;
     Route: 048
     Dates: start: 20151202, end: 20151204

REACTIONS (4)
  - Flushing [Recovering/Resolving]
  - Hypersensitivity [Recovering/Resolving]
  - Pruritus [Recovering/Resolving]
  - Sensation of foreign body [Recovering/Resolving]

NARRATIVE: CASE EVENT DATE: 20151202
